FAERS Safety Report 8157804-1 (Version None)
Quarter: 2012Q1

REPORT INFORMATION
  Report Type: 
  Country: None (occurrence: None)
  Receive Date: 20120222
  Receipt Date: 20120209
  Transmission Date: 20120608
  Serious: Yes (Other)
  Sender: FDA-Public Use
  Company Number: US-ROCHE-1038718

PATIENT
  Sex: Male

DRUGS (6)
  1. ACETAMINOPHEN [Concomitant]
  2. CYTOXAN [Concomitant]
  3. BENADRYL [Concomitant]
  4. RITUXAN [Suspect]
     Indication: CHRONIC LYMPHOCYTIC LEUKAEMIA
  5. FLUDARABINE PHOSPHATE [Concomitant]
  6. HYDROCORTISONE [Concomitant]

REACTIONS (3)
  - CHILLS [None]
  - CORONARY ARTERY BYPASS [None]
  - POST PROCEDURAL INFECTION [None]
